FAERS Safety Report 9937009 (Version 1)
Quarter: 2014Q1

REPORT INFORMATION
  Report Type: Spontaneous
  Country: US (occurrence: None)
  Receive Date: 20140116
  Receipt Date: 20140116
  Transmission Date: 20141002
  Serious: Yes (Other)
  Sender: FDA-Public Use
  Company Number: 2012AP003376

PATIENT
  Sex: Female

DRUGS (1)
  1. OMEPRAZOLE ( OMEPRAZOLE) [Suspect]
     Indication: PRODUCT USED FOR UNKNOWN INDICATION
     Dates: start: 20120729, end: 20120824

REACTIONS (2)
  - Drug hypersensitivity [None]
  - Pruritus [None]
